FAERS Safety Report 6433382-X (Version None)
Quarter: 2009Q4

REPORT INFORMATION
  Report Type: 
  Country: None (occurrence: None)
  Receive Date: 20091109
  Receipt Date: 20091102
  Transmission Date: 20100525
  Serious: Yes (Hospitalization, Disabling)
  Sender: FDA-Public Use
  Company Number: NO-MERCK-0911NOR00001

PATIENT
  Age: 30 Year
  Sex: Male

DRUGS (4)
  1. SINGULAIR [Suspect]
     Indication: ASTHMA
     Route: 048
     Dates: start: 20090220, end: 20090715
  2. SYMBICORT [Concomitant]
     Indication: ASTHMA
     Dates: start: 20090120
  3. PREDNISOLONE [Concomitant]
     Indication: ASTHMA
     Route: 048
     Dates: start: 20090626
  4. PREDNISOLONE [Concomitant]
     Route: 048
     Dates: start: 20081201, end: 20081201

REACTIONS (1)
  - ALLERGIC GRANULOMATOUS ANGIITIS [None]
